FAERS Safety Report 5808792-1 (Version None)
Quarter: 2008Q3

REPORT INFORMATION
  Report Type: 
  Country: None (occurrence: None)
  Receive Date: 20080714
  Receipt Date: 20080707
  Transmission Date: 20090109
  Serious: Yes (Other)
  Sender: FDA-Public Use
  Company Number: A0725634A

PATIENT
  Age: 79 Year
  Sex: Female

DRUGS (2)
  1. FLOVENT [Suspect]
     Indication: CHRONIC OBSTRUCTIVE PULMONARY DISEASE
     Dosage: 2PUFF TWICE PER DAY
     Route: 055
     Dates: start: 20050406
  2. SEREVENT [Concomitant]

REACTIONS (3)
  - DYSPNOEA [None]
  - NOCTURNAL DYSPNOEA [None]
  - PHARMACEUTICAL PRODUCT COMPLAINT [None]
